FAERS Safety Report 11441602 (Version 1)
Quarter: 2015Q3

REPORT INFORMATION
  Report Type: Spontaneous
  Country: US (occurrence: US)
  Receive Date: 20150901
  Receipt Date: 20150901
  Transmission Date: 20151125
  Serious: No
  Sender: FDA-Public Use
  Company Number: US-BIOGENIDEC-2015BI119548

PATIENT
  Age: 44 Year
  Sex: Female

DRUGS (5)
  1. TRAZODONE [Concomitant]
     Active Substance: TRAZODONE HYDROCHLORIDE
  2. TECFIDERA [Suspect]
     Active Substance: DIMETHYL FUMARATE
     Indication: MULTIPLE SCLEROSIS
     Dates: start: 20150522, end: 201508
  3. CLONAPIN [Concomitant]
     Active Substance: CLONAZEPAM
  4. EFFEXER [Concomitant]
  5. ORTHOTRICYCLIN [Concomitant]
     Indication: CONTRACEPTION

REACTIONS (3)
  - Overweight [Not Recovered/Not Resolved]
  - Depression [Not Recovered/Not Resolved]
  - Metamyelocyte count increased [Not Recovered/Not Resolved]

NARRATIVE: CASE EVENT DATE: 20150828
